FAERS Safety Report 5097391-8 (Version None)
Quarter: 2006Q3

REPORT INFORMATION
  Report Type: 
  Country: None (occurrence: None)
  Receive Date: 20060906
  Receipt Date: 20060821
  Transmission Date: 20061208
  Serious: Yes (Hospitalization)
  Sender: FDA-Public Use
  Company Number: US-SANOFI-SYNTHELABO-F03200600189

PATIENT
  Age: 51 Year
  Sex: Male
  Weight: 120 kg

DRUGS (2)
  1. OXALIPLATIN [Suspect]
     Indication: OESOPHAGEAL ADENOCARCINOMA
     Route: 042
     Dates: start: 20060814, end: 20060814
  2. CAPECITABINE [Suspect]
     Indication: OESOPHAGEAL ADENOCARCINOMA
     Dosage: 3600 MG ON DAYS 1 TO 5 EVERY SEVEN DAYS
     Route: 048
     Dates: start: 20060531, end: 20060814

REACTIONS (7)
  - DYSPHAGIA [None]
  - NAUSEA [None]
  - OESOPHAGITIS [None]
  - PAIN [None]
  - PYREXIA [None]
  - SPUTUM CULTURE POSITIVE [None]
  - VOMITING [None]
